FAERS Safety Report 5255062-9 (Version None)
Quarter: 2007Q1

REPORT INFORMATION
  Report Type: 
  Country: None (occurrence: None)
  Receive Date: 20070305
  Receipt Date: 20070221
  Transmission Date: 20070707
  Serious: Yes (Hospitalization)
  Sender: FDA-Public Use
  Company Number: FR-BRISTOL-MYERS SQUIBB COMPANY-13693734

PATIENT
  Age: 67 Year
  Sex: Male

DRUGS (7)
  1. VASTEN [Suspect]
     Route: 048
     Dates: start: 20061230, end: 20070206
  2. NOVONORM [Concomitant]
     Route: 048
     Dates: start: 20060515
  3. ACARBOSE [Concomitant]
     Route: 048
     Dates: start: 20060515
  4. NEXIUM [Concomitant]
  5. PERINDOPRIL ERBUMINE [Concomitant]
  6. PLAVIX [Concomitant]
  7. LASIX [Concomitant]

REACTIONS (1)
  - HYPOGLYCAEMIA [None]
